FAERS Safety Report 20330571 (Version 2)
Quarter: 2022Q2

REPORT INFORMATION
  Report Type: Spontaneous
  Country: DE (occurrence: DE)
  Receive Date: 20220113
  Receipt Date: 20220401
  Transmission Date: 20220721
  Serious: Yes (Life-Threatening, Hospitalization, Other)
  Sender: FDA-Public Use
  Company Number: None

PATIENT
  Age: 32 Year
  Sex: Female
  Weight: 87 kg

DRUGS (4)
  1. BETAMETHASONE [Suspect]
     Active Substance: BETAMETHASONE
     Indication: Prophylaxis
     Dosage: 12 MILLIGRAM, QD
     Route: 030
     Dates: start: 20210629, end: 20210630
  2. ATOSIBAN [Suspect]
     Active Substance: ATOSIBAN
     Indication: Tocolysis
     Dosage: 186.75 MILLIGRAM, QD
     Route: 042
     Dates: start: 20210629, end: 20210702
  3. MAGNESIUM [Suspect]
     Active Substance: MAGNESIUM
     Indication: Nervous system disorder prophylaxis
     Dosage: 24 MILLIGRAM, QD
     Route: 042
     Dates: start: 20210629, end: 20210630
  4. CEFUROXIME [Concomitant]
     Active Substance: CEFUROXIME
     Indication: Cervical incompetence
     Dosage: 4.5 GRAM, QD
     Route: 042
     Dates: start: 20210629, end: 20210730

REACTIONS (8)
  - Oxygen saturation decreased [Recovered/Resolved]
  - Exposure during pregnancy [Unknown]
  - Tachycardia [Recovered/Resolved]
  - Fibrin D dimer increased [Recovered/Resolved]
  - Transaminases increased [Recovered/Resolved]
  - Chest pain [Recovered/Resolved]
  - Tachypnoea [Recovered/Resolved]
  - Dyspnoea [Recovered/Resolved]

NARRATIVE: CASE EVENT DATE: 20210702
